FAERS Safety Report 5623836-8 (Version None)
Quarter: 2008Q1

REPORT INFORMATION
  Report Type: 
  Country: None (occurrence: None)
  Receive Date: 20080207
  Receipt Date: 20080125
  Transmission Date: 20080703
  Serious: Yes (Hospitalization)
  Sender: FDA-Public Use
  Company Number: ACO_00424_2008

PATIENT
  Age: 72 Year
  Sex: Male

DRUGS (3)
  1. TERNELIN (TERNELIN - TIZANIDINE HYDROCHLORIDE) [Suspect]
     Indication: MYOFASCIAL PAIN SYNDROME
     Dosage: 1 MG TID, ORAL
     Route: 048
     Dates: start: 20071031, end: 20071226
  2. GLYSENNID [Concomitant]
  3. SELTOUCH [Concomitant]

REACTIONS (8)
  - ALANINE AMINOTRANSFERASE INCREASED [None]
  - ANOREXIA [None]
  - ASPARTATE AMINOTRANSFERASE INCREASED [None]
  - BLOOD ALKALINE PHOSPHATASE INCREASED [None]
  - HEPATIC FUNCTION ABNORMAL [None]
  - LIVER DISORDER [None]
  - LYMPHOCYTE STIMULATION TEST POSITIVE [None]
  - MALAISE [None]
